FAERS Safety Report 4508337-2 (Version None)
Quarter: 2004Q4

REPORT INFORMATION
  Report Type: 
  Country: None (occurrence: None)
  Receive Date: 20041123
  Receipt Date: 20040112
  Transmission Date: 20050328
  Serious: No
  Sender: FDA-Public Use
  Company Number: US-GLAXOSMITHKLINE-A0492562A

PATIENT
  Age: 31 Year
  Sex: Female

DRUGS (2)
  1. WELLBUTRIN SR [Suspect]
     Dosage: 300MG UNKNOWN
     Route: 048
     Dates: start: 20040127
  2. DOXYCYCLIN [Concomitant]

REACTIONS (4)
  - DEPRESSION [None]
  - INCREASED APPETITE [None]
  - IRRITABILITY [None]
  - URTICARIA [None]
